FAERS Safety Report 19109846 (Version 3)
Quarter: 2021Q2

REPORT INFORMATION
  Report Type: Other
  Country: US (occurrence: US)
  Receive Date: 20210408
  Receipt Date: 20210527
  Transmission Date: 20210717
  Serious: Yes (Other)
  Sender: FDA-Public Use
  Company Number: US-ROCHE-2800562

PATIENT
  Sex: Female

DRUGS (7)
  1. PREDNISONE. [Concomitant]
     Active Substance: PREDNISONE
  2. CYMBALTA [Concomitant]
     Active Substance: DULOXETINE HYDROCHLORIDE
  3. HYDROXYCHLOROQUINE SULFATE. [Concomitant]
     Active Substance: HYDROXYCHLOROQUINE SULFATE
  4. ACTEMRA [Suspect]
     Active Substance: TOCILIZUMAB
  5. RECLAST [Concomitant]
     Active Substance: ZOLEDRONIC ACID
     Dates: start: 201912
  6. ACTEMRA [Suspect]
     Active Substance: TOCILIZUMAB
     Indication: POLYMYALGIA RHEUMATICA
     Dosage: 162 MG/0.9 ML
     Route: 058
  7. EVOXAC [Concomitant]
     Active Substance: CEVIMELINE HYDROCHLORIDE

REACTIONS (11)
  - Pain [Unknown]
  - Hypercholesterolaemia [Unknown]
  - Back pain [Unknown]
  - Urinary tract infection [Unknown]
  - Off label use [Unknown]
  - Pain in extremity [Unknown]
  - Hiatus hernia [Unknown]
  - Increased tendency to bruise [Unknown]
  - Kidney infection [Unknown]
  - Joint swelling [Unknown]
  - Arthralgia [Unknown]
